FAERS Safety Report 4862608-9 (Version None)
Quarter: 2005Q4

REPORT INFORMATION
  Report Type: 
  Country: None (occurrence: None)
  Receive Date: 20051221
  Receipt Date: 20051122
  Transmission Date: 20060501
  Serious: Yes (Hospitalization)
  Sender: FDA-Public Use
  Company Number: JP-ROCHE-426183

PATIENT
  Age: 5 Year
  Sex: Male

DRUGS (3)
  1. ROCEPHIN [Suspect]
     Indication: GASTROENTERITIS
     Route: 041
     Dates: start: 20050716, end: 20050720
  2. 1 CONCOMITANT DRUG [Concomitant]
     Dosage: DRUG REPORTED AS ORAL CEPHEM DRUGS
     Route: 048
  3. 1 CONCOMITANT DRUG [Concomitant]
     Dosage: DRUG REPORTED AS UNKNOWN DRUG (INTESTINAL REGULATORS)

REACTIONS (3)
  - BLOOD CREATININE INCREASED [None]
  - BLOOD UREA INCREASED [None]
  - RENAL DISORDER [None]
